FAERS Safety Report 22048372 (Version 1)
Quarter: 2023Q1

REPORT INFORMATION
  Report Type: Other
  Country: GB (occurrence: None)
  Receive Date: 20230301
  Receipt Date: 20230301
  Transmission Date: 20230418
  Serious: Yes (Death, Hospitalization)
  Sender: FDA-Public Use
  Company Number: GB-ROCHE-3211422

PATIENT
  Sex: Female

DRUGS (2)
  1. EVRYSDI [Suspect]
     Active Substance: RISDIPLAM
     Indication: Product used for unknown indication
     Route: 065
     Dates: start: 20210630
  2. EVRYSDI [Suspect]
     Active Substance: RISDIPLAM
     Dosage: MORE DOSAGE INFORMATION 1 PER DAY
     Route: 065
     Dates: start: 202106

REACTIONS (2)
  - Pneumonia [Unknown]
  - Death [Fatal]
